FAERS Safety Report 16456462 (Version 1)
Quarter: 2019Q3

REPORT INFORMATION
  Report Type: Spontaneous
  Country: US (occurrence: US)
  Receive Date: 20190619
  Receipt Date: 20190619
  Transmission Date: 20191004
  Serious: Yes (Life-Threatening, Hospitalization)
  Sender: FDA-Public Use
  Company Number: None

PATIENT
  Age: 30 Year
  Sex: Female
  Weight: 76.5 kg

DRUGS (1)
  1. TRI-PREVIFEM [Suspect]
     Active Substance: ETHINYL ESTRADIOL\NORGESTIMATE
     Indication: CONTRACEPTION
     Dates: start: 20180501, end: 20190509

REACTIONS (3)
  - Seizure [None]
  - Intracranial venous sinus thrombosis [None]
  - Cerebrovascular accident [None]

NARRATIVE: CASE EVENT DATE: 20190510
